FAERS Safety Report 9724781 (Version 1)
Quarter: 2013Q4

REPORT INFORMATION
  Report Type: Spontaneous
  Country: US (occurrence: US)
  Receive Date: 20131202
  Receipt Date: 20131202
  Transmission Date: 20140711
  Serious: No
  Sender: FDA-Public Use
  Company Number: US-009507513-1311USA007972

PATIENT
  Age: 21 Year
  Sex: Female

DRUGS (2)
  1. IMPLANON [Suspect]
     Indication: CONTRACEPTION
     Dosage: 1 ROD FOR 3 YEARS
     Route: 059
  2. IMPLANON [Suspect]
     Indication: MUSCLE SPASMS

REACTIONS (3)
  - Menstruation irregular [Unknown]
  - Muscle spasms [Unknown]
  - Off label use [Unknown]
